FAERS Safety Report 5441245-1 (Version None)
Quarter: 2007Q3

REPORT INFORMATION
  Report Type: 
  Country: None (occurrence: None)
  Receive Date: 20070901
  Receipt Date: 20070822
  Transmission Date: 20080115
  Serious: Yes (Life-Threatening)
  Sender: FDA-Public Use
  Company Number: DE-PFIZER INC-2007070733

PATIENT
  Sex: Female
  Weight: 80 kg

DRUGS (8)
  1. ZYVOX [Suspect]
     Indication: ENTEROCOCCAL SEPSIS
     Dosage: DAILY DOSE:1200MG
     Route: 042
  2. NOREPINEPHRINE BITARTRATE [Concomitant]
  3. DOBUTAMINE HCL [Concomitant]
  4. CORDAREX [Concomitant]
  5. DIURETICS [Concomitant]
  6. DIGITALIS TAB [Concomitant]
  7. MIDAZOLAM HCL [Concomitant]
  8. DRUG, UNSPECIFIED [Concomitant]

REACTIONS (1)
  - VENTRICULAR TACHYCARDIA [None]
